FAERS Safety Report 9155258 (Version 2)
Quarter: 2013Q2

REPORT INFORMATION
  Report Type: Report from Study
  Country: DE (occurrence: DE)
  Receive Date: 20130311
  Receipt Date: 20130614
  Transmission Date: 20140414
  Serious: Yes (Other)
  Sender: FDA-Public Use
  Company Number: DE-ROCHE-1198270

PATIENT
  Age: 57 Year
  Sex: Female
  Weight: 104.5 kg

DRUGS (8)
  1. TRASTUZUMAB [Suspect]
     Indication: BREAST CANCER
     Dosage: LOADING DOSE:8MG/KG
     Route: 042
     Dates: start: 20121106
  2. TRASTUZUMAB [Suspect]
     Dosage: MAINTAINENCE DOSE,LAST DOSE PRIOR TO SAE 20/FEB/2013
     Route: 042
  3. PACLITAXEL [Suspect]
     Indication: BREAST CANCER
     Dosage: LAST DOSE PRIOR TO SAE 04/FEB/2013
     Route: 042
     Dates: start: 20121106
  4. RAMIPRIL [Concomitant]
     Route: 065
     Dates: start: 2001
  5. VENLAFAXINE [Concomitant]
     Route: 065
     Dates: start: 2001
  6. TETRAZEPAM [Concomitant]
     Route: 065
     Dates: start: 20130107
  7. TRAMAL [Concomitant]
     Route: 065
     Dates: start: 20130107
  8. PERTUZUMAB [Suspect]
     Indication: BREAST CANCER
     Dosage: LAST DOSE PRIOR TO SAE 20/FEB/2013
     Route: 042
     Dates: start: 20121106

REACTIONS (1)
  - Syncope [Recovered/Resolved]
